FAERS Safety Report 10276306 (Version 1)
Quarter: 2014Q3

REPORT INFORMATION
  Report Type: Spontaneous
  Country: CH (occurrence: CH)
  Receive Date: 20140703
  Receipt Date: 20140703
  Transmission Date: 20150326
  Serious: Yes (Disabling)
  Sender: FDA-Public Use
  Company Number: PHHY2014CH079650

PATIENT
  Age: 18 Year
  Sex: Male
  Weight: 60 kg

DRUGS (17)
  1. DOXORUBICIN [Concomitant]
     Active Substance: DOXORUBICIN
     Indication: BURKITT^S LEUKAEMIA
     Dosage: 95 MG, QD
     Route: 042
     Dates: start: 20140208
  2. METHOTREXATE (METHOTREXATE SODIUM) [Concomitant]
     Active Substance: METHOTREXATE SODIUM
     Indication: BURKITT^S LEUKAEMIA
     Dosage: 1870 MG, UNK
     Route: 042
     Dates: start: 20140303
  3. FLUCONAZOLE. [Interacting]
     Active Substance: FLUCONAZOLE
     Dosage: 400 MG, BID
     Route: 048
     Dates: start: 20140205, end: 20140214
  4. VINCRISTINE [Interacting]
     Active Substance: VINCRISTINE
     Indication: BURKITT^S LEUKAEMIA
     Dosage: 2 MG, UNK
     Route: 042
     Dates: start: 20140208, end: 20140403
  5. POSACONAZOLE [Interacting]
     Active Substance: POSACONAZOLE
     Indication: BRONCHOPULMONARY ASPERGILLOSIS
     Dosage: 300 MG, QID
     Route: 048
     Dates: start: 20140328
  6. VORICONAZOLE. [Interacting]
     Active Substance: VORICONAZOLE
     Indication: BRONCHOPULMONARY ASPERGILLOSIS
     Dosage: 200 MG, QID
     Route: 048
     Dates: start: 20140214, end: 20140328
  7. DEXAMETHASONE. [Concomitant]
     Active Substance: DEXAMETHASONE
     Indication: BURKITT^S LEUKAEMIA
     Dosage: 40 MG, UNK
     Route: 042
     Dates: start: 20140205
  8. PREDNISON [Concomitant]
     Active Substance: PREDNISONE
     Dosage: 20 MG, QD
     Route: 048
  9. ZOLPIDEM [Concomitant]
     Active Substance: ZOLPIDEM\ZOLPIDEM TARTRATE
     Dosage: 1 MG, TID
  10. RITUXIMAB [Concomitant]
     Active Substance: RITUXIMAB
     Dosage: 720 MG, UNK
     Route: 042
     Dates: start: 20140205, end: 20140218
  11. HYDROMORPHONE [Concomitant]
     Active Substance: HYDROMORPHONE
     Dosage: 2 MG, 6QD
     Route: 048
  12. CYCLOPHOSPHAMIDE. [Concomitant]
     Active Substance: CYCLOPHOSPHAMIDE
     Indication: BURKITT^S LEUKAEMIA
     Dosage: 580 MG, UNK
     Route: 042
     Dates: start: 20140205
  13. PARACETAMOL [Concomitant]
     Active Substance: ACETAMINOPHEN
     Dosage: 1 G, TID
     Route: 048
  14. CYTARABINE. [Suspect]
     Active Substance: CYTARABINE
     Indication: BURKITT^S LEUKAEMIA
     Dosage: 5300 MG, UNK
     Route: 042
     Dates: start: 20140305
  15. MESNA. [Concomitant]
     Active Substance: MESNA
     Indication: BURKITT^S LEUKAEMIA
     Dosage: 1150 MG, UNK
     Route: 042
     Dates: start: 20140205
  16. VALACICLOVIR [Concomitant]
     Active Substance: VALACYCLOVIR HYDROCHLORIDE
     Dosage: 500 MG, BID
     Route: 048
  17. COTRIMOXAZOLE [Concomitant]
     Active Substance: SULFAMETHOXAZOLE\TRIMETHOPRIM
     Route: 048

REACTIONS (5)
  - Toxicity to various agents [Not Recovered/Not Resolved]
  - Drug interaction [Unknown]
  - Toxic neuropathy [Not Recovered/Not Resolved]
  - Radiculitis [Not Recovered/Not Resolved]
  - Overdose [Unknown]

NARRATIVE: CASE EVENT DATE: 20140208
